FAERS Safety Report 4985301-0 (Version None)
Quarter: 2006Q2

REPORT INFORMATION
  Report Type: 
  Country: None (occurrence: None)
  Receive Date: 20060427
  Receipt Date: 20060414
  Transmission Date: 20061013
  Serious: Yes (Other)
  Sender: FDA-Public Use
  Company Number: PR-MERCK-0604USA04018

PATIENT
  Age: 49 Year
  Sex: Female
  Weight: 82 kg

DRUGS (8)
  1. GLYNASE [Concomitant]
     Route: 048
  2. GLUCOPHAGE [Concomitant]
     Route: 065
  3. VIOXX [Suspect]
     Indication: OSTEOARTHRITIS
     Route: 048
     Dates: start: 19990101, end: 20030101
  4. VIOXX [Suspect]
     Route: 048
     Dates: start: 19990101, end: 20030101
  5. VIOXX [Suspect]
     Indication: OSTEOPOROSIS
     Route: 048
     Dates: start: 19990101, end: 20030101
  6. VIOXX [Suspect]
     Route: 048
     Dates: start: 19990101, end: 20030101
  7. CELEBREX [Concomitant]
     Route: 065
  8. VASOTEC [Concomitant]
     Route: 048

REACTIONS (12)
  - ANGINA PECTORIS [None]
  - BLOOD CHOLESTEROL INCREASED [None]
  - BLOOD TRIGLYCERIDES INCREASED [None]
  - BRONCHITIS [None]
  - CARDIOMEGALY [None]
  - DYSPEPSIA [None]
  - GASTRITIS [None]
  - GASTROOESOPHAGEAL REFLUX DISEASE [None]
  - LACUNAR INFARCTION [None]
  - OVERDOSE [None]
  - PANCREATITIS [None]
  - URINARY TRACT INFECTION [None]
